FAERS Safety Report 10204230 (Version 1)
Quarter: 2014Q2

REPORT INFORMATION
  Report Type: Spontaneous
  Country: US (occurrence: None)
  Receive Date: 20140527
  Receipt Date: 20140527
  Transmission Date: 20141212
  Serious: Yes (Hospitalization)
  Sender: FDA-Public Use
  Company Number: UNT-2014-000560

PATIENT
  Age: 65 Year
  Sex: Male

DRUGS (3)
  1. TYVASO [Suspect]
     Indication: COR PULMONALE CHRONIC
     Dates: start: 20110928
  2. ADCIRCA [Concomitant]
  3. LETAIRIS [Concomitant]

REACTIONS (2)
  - Dyspnoea [None]
  - Fluid overload [None]
